FAERS Safety Report 25501907 (Version 1)
Quarter: 2025Q3

REPORT INFORMATION
  Report Type: Spontaneous
  Country: US (occurrence: US)
  Receive Date: 20250702
  Receipt Date: 20250702
  Transmission Date: 20251020
  Serious: Yes (Other)
  Sender: JOHNSON AND JOHNSON
  Company Number: US-JNJFOC-20250632458

PATIENT
  Sex: Female

DRUGS (7)
  1. TREMFYA [Suspect]
     Active Substance: GUSELKUMAB
     Indication: Inflammatory bowel disease
     Route: 065
  2. TREMFYA [Suspect]
     Active Substance: GUSELKUMAB
     Indication: Spondylitis
  3. DOCETAXEL [Suspect]
     Active Substance: DOCETAXEL
     Indication: Lung adenocarcinoma
     Route: 065
  4. CYRAMZA [Suspect]
     Active Substance: RAMUCIRUMAB
     Indication: Lung adenocarcinoma
     Route: 065
  5. NEULASTA [Suspect]
     Active Substance: PEGFILGRASTIM
     Indication: Lung adenocarcinoma
     Route: 065
  6. PREDNISONE [Concomitant]
     Active Substance: PREDNISONE
     Indication: Spondylitis
  7. PREDNISONE [Concomitant]
     Active Substance: PREDNISONE
     Indication: Inflammatory bowel disease

REACTIONS (2)
  - Inflammatory bowel disease [Unknown]
  - Ankylosing spondylitis [Unknown]
